FAERS Safety Report 5096390-X (Version None)
Quarter: 2006Q3

REPORT INFORMATION
  Report Type: 
  Country: None (occurrence: None)
  Receive Date: 20060830
  Receipt Date: 20060731
  Transmission Date: 20061208
  Serious: Yes (Other)
  Sender: FDA-Public Use
  Company Number: CA200608000168

PATIENT

DRUGS (3)
  1. ZYPREXA ZYDIS [Suspect]
     Dosage: 20 MG, DAILY (1/D), ORAL
     Route: 048
  2. CANNABIS (CANNABIS) [Concomitant]
  3. VITAMINS [Concomitant]

REACTIONS (2)
  - DRUG EXPOSURE DURING PREGNANCY [None]
  - PREMATURE BABY [None]
